FAERS Safety Report 5138720-6 (Version None)
Quarter: 2006Q4

REPORT INFORMATION
  Report Type: 
  Country: None (occurrence: None)
  Receive Date: 20061030
  Receipt Date: 20061003
  Transmission Date: 20070319
  Serious: Yes (Other)
  Sender: FDA-Public Use
  Company Number: US-MERCK-0610USA03654

PATIENT
  Sex: Female

DRUGS (2)
  1. VYTORIN [Suspect]
     Indication: BLOOD CHOLESTEROL INCREASED
     Route: 048
  2. NONSTEROIDAL ANTI-INFLAMMATORY DRUG (UNSPECIFIED) [Suspect]
     Route: 065

REACTIONS (1)
  - HEPATIC FAILURE [None]
